FAERS Safety Report 5700307-1 (Version None)
Quarter: 2008Q2

REPORT INFORMATION
  Report Type: 
  Country: None (occurrence: None)
  Receive Date: 20080410
  Receipt Date: 20080401
  Transmission Date: 20081010
  Serious: Yes (Death)
  Sender: FDA-Public Use
  Company Number: B0463286A

PATIENT
  Sex: Male

DRUGS (9)
  1. PAROXETINE HCL [Suspect]
     Indication: DEPRESSION
     Route: 065
     Dates: start: 20000719
  2. WARFARIN SODIUM [Suspect]
     Indication: DRUG USE FOR UNKNOWN INDICATION
     Dosage: 8MG PER DAY
     Dates: start: 20030407
  3. CO-PROXAMOL [Suspect]
     Indication: DRUG USE FOR UNKNOWN INDICATION
     Dates: start: 20030407
  4. GLICLAZIDE [Suspect]
     Indication: DRUG USE FOR UNKNOWN INDICATION
     Dates: start: 20030407
  5. LAGER [Concomitant]
     Dates: start: 20030407
  6. ANTIDEPRESSANTS [Concomitant]
  7. ECSTASY [Concomitant]
  8. LOFEPRAMINE [Concomitant]
     Dates: start: 20030113
  9. LOFEPRAMINE [Concomitant]
     Dates: start: 20031020

REACTIONS (24)
  - AGGRESSION [None]
  - AGITATION [None]
  - ANXIETY [None]
  - COMPLETED SUICIDE [None]
  - DEATH [None]
  - DEPRESSED MOOD [None]
  - DRUG WITHDRAWAL SYNDROME [None]
  - EMOTIONAL DISTRESS [None]
  - HYPERHIDROSIS [None]
  - HYPOTENSION [None]
  - ILL-DEFINED DISORDER [None]
  - INTENTIONAL OVERDOSE [None]
  - INTENTIONAL SELF-INJURY [None]
  - MOOD SWINGS [None]
  - NAUSEA [None]
  - NIGHT SWEATS [None]
  - NIGHTMARE [None]
  - PALLOR [None]
  - PANIC REACTION [None]
  - PHOBIA [None]
  - SOCIAL AVOIDANT BEHAVIOUR [None]
  - SUICIDAL IDEATION [None]
  - TACHYCARDIA [None]
  - VOMITING [None]
